FAERS Safety Report 7500938-2 (Version None)
Quarter: 2011Q2

REPORT INFORMATION
  Report Type: 
  Country: None (occurrence: None)
  Receive Date: 20110524
  Receipt Date: 20110519
  Transmission Date: 20111010
  Serious: Yes (Other)
  Sender: FDA-Public Use
  Company Number: BR-PFIZER INC-2011108751

PATIENT
  Age: 46 Year
  Sex: Male
  Weight: 120 kg

DRUGS (4)
  1. LAMITOR [Concomitant]
     Indication: MOOD ALTERED
     Dosage: UNK
  2. GEODON [Suspect]
     Indication: BIPOLAR DISORDER
     Dosage: 40 MG, 2X/DAY
     Route: 048
     Dates: start: 20091101
  3. BUPROPION [Concomitant]
     Indication: DEPRESSION
     Dosage: UNK
  4. CLONAZEPAM [Concomitant]
     Indication: SLEEP DISORDER
     Dosage: UNK

REACTIONS (2)
  - WEIGHT DECREASED [None]
  - DEPRESSION [None]
